FAERS Safety Report 20904267 (Version 1)
Quarter: 2022Q2

REPORT INFORMATION
  Report Type: Spontaneous
  Country: JP (occurrence: JP)
  Receive Date: 20220602
  Receipt Date: 20220602
  Transmission Date: 20220721
  Serious: Yes (Other)
  Sender: FDA-Public Use
  Company Number: JP-TEVA-2022-JP-2035608

PATIENT
  Age: 85 Year
  Sex: Male

DRUGS (1)
  1. AZILECT [Suspect]
     Active Substance: RASAGILINE MESYLATE
     Indication: Parkinson^s disease
     Dosage: 1 MILLIGRAM DAILY;
     Dates: start: 20220402, end: 20220408

REACTIONS (4)
  - Cardiac dysfunction [Unknown]
  - Oedema [Not Recovered/Not Resolved]
  - Limb injury [Unknown]
  - Oedema peripheral [Unknown]

NARRATIVE: CASE EVENT DATE: 20220415
